FAERS Safety Report 15641000 (Version 1)
Quarter: 2018Q4

REPORT INFORMATION
  Report Type: Spontaneous
  Country: US (occurrence: US)
  Receive Date: 20181120
  Receipt Date: 20181120
  Transmission Date: 20190205
  Serious: No
  Sender: FDA-Public Use
  Company Number: US-BAUSCH-BL-2018-003667

PATIENT
  Sex: Female
  Weight: 59.02 kg

DRUGS (1)
  1. FLUOROURACIL. [Suspect]
     Active Substance: FLUOROURACIL
     Indication: SKIN CANCER
     Route: 065
     Dates: start: 201801, end: 20180205

REACTIONS (2)
  - Faeces soft [Recovered/Resolved]
  - Diarrhoea [Recovered/Resolved]
